FAERS Safety Report 17675888 (Version 2)
Quarter: 2020Q3

REPORT INFORMATION
  Report Type: Spontaneous
  Country: GB (occurrence: PL)
  Receive Date: 20200416
  Receipt Date: 20200724
  Transmission Date: 20201102
  Serious: Yes (Death, Other)
  Sender: FDA-Public Use
  Company Number: GB-JNJFOC-20200415064

PATIENT
  Sex: Female

DRUGS (4)
  1. BETASERC                           /00141801/ [Suspect]
     Active Substance: BETAHISTINE
     Dosage: UNK
     Dates: start: 2020
  2. SIOFOR [Suspect]
     Active Substance: METFORMIN HYDROCHLORIDE
     Dosage: UNK
     Dates: start: 2020
  3. RIVAROXABAN [Suspect]
     Active Substance: RIVAROXABAN
     Indication: PULMONARY THROMBOSIS
     Dosage: UNK
     Route: 048
     Dates: start: 2019
  4. CAVINTON FORTE [Suspect]
     Active Substance: VINPOCETINE
     Dosage: UNK
     Dates: start: 2020

REACTIONS (5)
  - Death [Fatal]
  - Ear infection [Unknown]
  - Hallucination, visual [Unknown]
  - Pharyngeal inflammation [Unknown]
  - Psychotic disorder [Unknown]

NARRATIVE: CASE EVENT DATE: 2020
